FAERS Safety Report 7622611-2 (Version None)
Quarter: 2011Q3

REPORT INFORMATION
  Report Type: 
  Country: None (occurrence: None)
  Receive Date: 20110712
  Receipt Date: 20110627
  Transmission Date: 20111222
  Serious: Yes (Hospitalization, Other)
  Sender: FDA-Public Use
  Company Number: AUR-APL-2011-04008

PATIENT
  Sex: Female

DRUGS (3)
  1. METFORMIN HCL [Suspect]
     Indication: PRODUCT USED FOR UNKNOWN INDICATION
     Dosage: (3 IN 1 D)
  2. GLYBURIDE [Suspect]
     Indication: PRODUCT USED FOR UNKNOWN INDICATION
     Dosage: (24 HR)
  3. PEGAPTANIB SODIUM(PEGAPTANIB SODIUM) [Suspect]
     Indication: PRODUCT USED FOR UNKNOWN INDICATION
     Dosage: 0.0071 MG (0.3 MG, 1 IN 6 WK),INTRAOCULAR
     Route: 031
     Dates: start: 20110513

REACTIONS (1)
  - CEREBROVASCULAR ACCIDENT [None]
